FAERS Safety Report 6604171-8 (Version None)
Quarter: 2010Q1

REPORT INFORMATION
  Report Type: 
  Country: None (occurrence: None)
  Receive Date: 20100226
  Receipt Date: 20090513
  Transmission Date: 20100710
  Serious: No
  Sender: FDA-Public Use
  Company Number: A0792101A

PATIENT
  Sex: Male

DRUGS (1)
  1. LAMOTRIGINE [Suspect]
     Route: 048
     Dates: start: 20090101

REACTIONS (4)
  - FATIGUE [None]
  - FEELING ABNORMAL [None]
  - MALAISE [None]
  - MUSCULAR WEAKNESS [None]
